FAERS Safety Report 18061598 (Version 1)
Quarter: 2020Q3

REPORT INFORMATION
  Report Type: Spontaneous
  Country: US (occurrence: US)
  Receive Date: 20200723
  Receipt Date: 20200723
  Transmission Date: 20201103
  Serious: No
  Sender: FDA-Public Use
  Company Number: US-009507513-2007USA008202

PATIENT
  Sex: Female

DRUGS (1)
  1. NEXPLANON [Suspect]
     Active Substance: ETONOGESTREL
     Dosage: 1 DOSAGE FORM, 3 YEARS
     Route: 059
     Dates: start: 2017

REACTIONS (1)
  - Incorrect product administration duration [Unknown]

NARRATIVE: CASE EVENT DATE: 2020
